FAERS Safety Report 23943668 (Version 1)
Quarter: 2024Q2

REPORT INFORMATION
  Report Type: Report from Study
  Country: US (occurrence: None)
  Receive Date: 20240606
  Receipt Date: 20240606
  Transmission Date: 20240716
  Serious: Yes (Other)
  Sender: FDA-Public Use
  Company Number: 2024A126508

PATIENT
  Sex: Female

DRUGS (1)
  1. LYNPARZA [Suspect]
     Active Substance: OLAPARIB
     Indication: Ovarian cancer
     Route: 048
     Dates: start: 20240402

REACTIONS (9)
  - Eye disorder [Unknown]
  - Accident [Unknown]
  - Fall [Unknown]
  - Lower limb fracture [Unknown]
  - Somnolence [Unknown]
  - Blood test abnormal [Unknown]
  - White blood cell count decreased [Unknown]
  - Platelet count decreased [Unknown]
  - Product dose omission issue [Unknown]
